FAERS Safety Report 18026812 (Version 2)
Quarter: 2020Q3

REPORT INFORMATION
  Report Type: Spontaneous
  Country: US (occurrence: US)
  Receive Date: 20200715
  Receipt Date: 20200721
  Transmission Date: 20201103
  Serious: Yes (Hospitalization, Other)
  Sender: FDA-Public Use
  Company Number: US-PFIZER INC-2020269641

PATIENT
  Age: 19 Year
  Sex: Male
  Weight: 95 kg

DRUGS (6)
  1. SUCCINYLCHOLINE CHLORIDE. [Concomitant]
     Active Substance: SUCCINYLCHOLINE CHLORIDE
     Dosage: 120 MG
  2. METOCURINE IODIDE. [Concomitant]
     Active Substance: METOCURINE IODIDE
     Dosage: 2 MG
  3. LACTATED RINGERS SOLUTION [Concomitant]
     Active Substance: CALCIUM CHLORIDE\POTASSIUM CHLORIDE\SODIUM CHLORIDE\SODIUM LACTATE
     Dosage: UNK (APPROXIMATELY 1,300 ML)
  4. NALOXONE HCL [Suspect]
     Active Substance: NALOXONE HYDROCHLORIDE
     Dosage: 80 UG (TWO IV DOSES OF 40 UG NALOXONE SEPARATED BY 5 MIN)
     Route: 042
  5. FENTANYL. [Concomitant]
     Active Substance: FENTANYL
     Dosage: 200 UG
  6. THIAMYLAL SODIUM [Concomitant]
     Active Substance: THIAMYLAL SODIUM
     Indication: ANAESTHESIA
     Dosage: 500 MG (IN DIVIDED DOSES)

REACTIONS (1)
  - Pulmonary oedema [Recovered/Resolved]
